FAERS Safety Report 5628514-7 (Version None)
Quarter: 2008Q1

REPORT INFORMATION
  Report Type: 
  Country: None (occurrence: None)
  Receive Date: 20080215
  Receipt Date: 20080207
  Transmission Date: 20080703
  Serious: Yes (Other)
  Sender: FDA-Public Use
  Company Number: JP-PFIZER INC-2008011269

PATIENT
  Age: 25 Year
  Sex: Female

DRUGS (2)
  1. ZOLOFT [Suspect]
     Indication: PANIC ATTACK
     Dosage: DAILY DOSE:100MG
     Route: 048
  2. DIAZEPAM [Suspect]
     Indication: PANIC ATTACK
     Dosage: DAILY DOSE:15MG

REACTIONS (1)
  - ABORTION [None]
